FAERS Safety Report 5752707-1 (Version None)
Quarter: 2008Q2

REPORT INFORMATION
  Report Type: 
  Country: None (occurrence: None)
  Receive Date: 20080529
  Receipt Date: 20080404
  Transmission Date: 20081010
  Serious: No
  Sender: FDA-Public Use
  Company Number: US-BAYER-200713966BCC

PATIENT
  Age: 73 Year
  Sex: Female
  Weight: 73 kg

DRUGS (8)
  1. ALEVE [Suspect]
     Indication: ARTHRITIS
     Dosage: TOTAL DAILY DOSE: 220 MG  UNIT DOSE: 220 MG
     Route: 048
     Dates: start: 20071128, end: 20071128
  2. ALEVE [Suspect]
     Indication: PAIN
     Route: 048
  3. HYDROXYZINE [Concomitant]
  4. ATENOLOL [Concomitant]
  5. EQUATE MULTIVITAMINS [Concomitant]
  6. NIACIN [Concomitant]
  7. VITAMIN E [Concomitant]
  8. METFORMIN HCL [Concomitant]

REACTIONS (2)
  - ABDOMINAL PAIN [None]
  - FAECES DISCOLOURED [None]
